FAERS Safety Report 16550809 (Version 1)
Quarter: 2019Q3

REPORT INFORMATION
  Report Type: Spontaneous
  Country: AT (occurrence: AT)
  Receive Date: 20190710
  Receipt Date: 20190710
  Transmission Date: 20191004
  Serious: Yes (Other)
  Sender: FDA-Public Use
  Company Number: AT-TEVA-2019-AT-1075397

PATIENT
  Age: 52 Year
  Sex: Female

DRUGS (1)
  1. COPAXONE [Suspect]
     Active Substance: GLATIRAMER ACETATE
     Dates: start: 201503

REACTIONS (2)
  - Injection site pain [Not Recovered/Not Resolved]
  - Circulatory collapse [Unknown]

NARRATIVE: CASE EVENT DATE: 2015
